FAERS Safety Report 16386841 (Version 1)
Quarter: 2019Q2

REPORT INFORMATION
  Report Type: Spontaneous
  Country: KZ (occurrence: KZ)
  Receive Date: 20190604
  Receipt Date: 20190604
  Transmission Date: 20190711
  Serious: Yes (Hospitalization)
  Sender: FDA-Public Use
  Company Number: KZ-TEVA-2019-KZ-1058392

PATIENT
  Sex: Male

DRUGS (1)
  1. FINLEPSIN [Suspect]
     Active Substance: CARBAMAZEPINE
     Indication: MUSCLE MASS
     Dosage: TOOK ABOUT 15-20 TABLETS
     Dates: start: 20190525

REACTIONS (8)
  - Neurological symptom [Unknown]
  - Device use issue [Unknown]
  - Sopor [Recovering/Resolving]
  - Poisoning [Unknown]
  - Drug abuse [Unknown]
  - Seizure [Unknown]
  - Coma [Recovering/Resolving]
  - Overdose [Unknown]
